FAERS Safety Report 20867844 (Version 1)
Quarter: 2022Q2

REPORT INFORMATION
  Report Type: Report from Study
  Country: CN (occurrence: CN)
  Receive Date: 20220524
  Receipt Date: 20220524
  Transmission Date: 20220721
  Serious: Yes (Death, Other)
  Sender: FDA-Public Use
  Company Number: CN-AMGEN-CHNSL2021205358

PATIENT
  Age: 35 Year
  Sex: Male

DRUGS (2)
  1. XGEVA [Suspect]
     Active Substance: DENOSUMAB
     Indication: Gastric cancer
     Dosage: 120 MILLIGRAM, QMO
     Route: 065
     Dates: start: 20211029
  2. XGEVA [Suspect]
     Active Substance: DENOSUMAB
     Indication: Metastases to bone

REACTIONS (3)
  - Metastatic gastric cancer [Fatal]
  - General physical condition abnormal [Unknown]
  - Hyperaesthesia teeth [Unknown]
